FAERS Safety Report 8433402-7 (Version None)
Quarter: 2012Q2

REPORT INFORMATION
  Report Type: 
  Country: None (occurrence: None)
  Receive Date: 20120323
  Receipt Date: 20110930
  Transmission Date: 20120825
  Serious: Yes (Hospitalization)
  Sender: FDA-Public Use
  Company Number: 163-21880-11083263

PATIENT
  Age: 87 Year
  Sex: Male

DRUGS (16)
  1. CYCLOGYL [Concomitant]
  2. REVLIMID [Suspect]
  3. REVLIMID [Suspect]
     Indication: MULTIPLE MYELOMA
     Dosage: 5 MG, 1 IN 1 D, PO 5 MG, 3 TIMES A WEEK, PO
     Route: 048
     Dates: start: 20080820, end: 20090109
  4. REVLIMID [Suspect]
     Indication: MULTIPLE MYELOMA
     Dosage: 5 MG, 1 IN 1 D, PO 5 MG, 3 TIMES A WEEK, PO
     Route: 048
     Dates: start: 20090109
  5. VITAMIN D [Concomitant]
  6. BUMEX [Concomitant]
  7. HECTOROL [Concomitant]
  8. SIMVASTATIN [Concomitant]
  9. PREDNISOLONE [Concomitant]
  10. NIACIN [Concomitant]
  11. FLOMAX [Concomitant]
  12. PROCRIT [Concomitant]
  13. LOSARTAN POTASSIUM [Concomitant]
  14. NORVASC [Concomitant]
  15. METOPROLOL TARTRATE [Concomitant]
  16. LOPRESSOR [Concomitant]

REACTIONS (2)
  - BACK PAIN [None]
  - OEDEMA PERIPHERAL [None]
